FAERS Safety Report 4687325-X (Version None)
Quarter: 2005Q2

REPORT INFORMATION
  Report Type: 
  Country: None (occurrence: None)
  Receive Date: 20050609
  Receipt Date: 20050526
  Transmission Date: 20051028
  Serious: Yes (Death)
  Sender: FDA-Public Use
  Company Number: 2005S1004142

PATIENT
  Age: 79 Year
  Sex: Male

DRUGS (20)
  1. CLOZAPINE [Suspect]
     Dosage: 25 MG QD PO
     Route: 048
     Dates: end: 20050501
  2. HYOSCYAMINE [Concomitant]
  3. LORAZEPAM [Concomitant]
  4. HYOSCYAMINE SULFATE [Concomitant]
  5. MORPHINE SULFATE [Concomitant]
  6. CLINDAMYCIN [Concomitant]
  7. CIPROFLOXACIN HCL [Concomitant]
  8. LIDOCAINE HYDROCHLORIDE/CEFTRIAXONE SODIUM [Concomitant]
  9. POLYMYXIN B SULFATE/GRAMICIDIN [Concomitant]
  10. CARBIDOPA AND LEVODOPA [Concomitant]
  11. ARIPRAZOLE [Concomitant]
  12. TAMSULOSIN HCL [Concomitant]
  13. MIDODRINE HCL [Concomitant]
  14. DONEPEZIL HCL [Concomitant]
  15. BISACODYL [Concomitant]
  16. POTASSIUM CHLORIDE [Concomitant]
  17. FLUDROCORTISONE [Concomitant]
  18. SALBUTAMOL [Concomitant]
  19. RIMANTADINE HCL [Concomitant]
  20. LEVOFLOXACIN [Concomitant]

REACTIONS (1)
  - DEATH [None]
